FAERS Safety Report 5118674-9 (Version None)
Quarter: 2006Q3

REPORT INFORMATION
  Report Type: 
  Country: None (occurrence: None)
  Receive Date: 20060927
  Receipt Date: 20060914
  Transmission Date: 20061208
  Serious: Yes (Death, Hospitalization)
  Sender: FDA-Public Use
  Company Number: HQWYE686114SEP06

PATIENT
  Age: 88 Year
  Sex: Female

DRUGS (9)
  1. PANTOPRAZOLE SODIUM [Suspect]
     Dosage: DF   ORAL
     Route: 048
     Dates: start: 20060221
  2. PANTOPRAZOLE SODIUM [Suspect]
     Dosage: DF   ORAL
     Route: 048
     Dates: start: 20060301
  3. ASPIRIN [Suspect]
     Dosage: DF            ORAL
     Route: 048
  4. LASIX [Suspect]
     Dosage: DF      ORAL
     Route: 048
     Dates: start: 20060326
  5. METOCLOPRAMIDE [Suspect]
     Dosage: DF
  6. CLONAZEPAM [Suspect]
     Indication: ANXIETY DISORDER
     Dosage: DF          ORAL
     Route: 048
     Dates: start: 20060406, end: 20060411
  7. CIFLOX (CIPROFLOXACIN), DF [Concomitant]
  8. ROCEPHIN (CEFTRIAXONE SODIUM), DF [Concomitant]
  9. HEPARIN (HEPARIN), DF [Concomitant]

REACTIONS (6)
  - AGRANULOCYTOSIS [None]
  - ANXIETY [None]
  - DEEP VEIN THROMBOSIS [None]
  - INFLAMMATION [None]
  - PULMONARY EMBOLISM [None]
  - URINARY TRACT INFECTION [None]
